FAERS Safety Report 5736986-2 (Version None)
Quarter: 2008Q2

REPORT INFORMATION
  Report Type: 
  Country: None (occurrence: None)
  Receive Date: 20080512
  Receipt Date: 20080512
  Transmission Date: 20081010
  Serious: Yes (Other)
  Sender: FDA-Public Use
  Company Number: None

PATIENT
  Age: 20 Year

DRUGS (1)
  1. SEROQUEL [Suspect]
     Dosage: 25 MG PO BID
     Route: 048
     Dates: start: 20080305, end: 20080306

REACTIONS (3)
  - DYSARTHRIA [None]
  - DYSTONIA [None]
  - TONGUE DISORDER [None]
